FAERS Safety Report 13746167 (Version 1)
Quarter: 2017Q3

REPORT INFORMATION
  Report Type: Spontaneous
  Country: US (occurrence: US)
  Receive Date: 20170712
  Receipt Date: 20170712
  Transmission Date: 20171127
  Serious: Yes (Life-Threatening, Hospitalization, Disabling, Other)
  Sender: FDA-Public Use
  Company Number: None

PATIENT
  Age: 42 Year
  Sex: Female
  Weight: 107.14 kg

DRUGS (10)
  1. POTASSIUM [Concomitant]
     Active Substance: POTASSIUM
  2. MIRENA [Suspect]
     Active Substance: LEVONORGESTREL
  3. KEPPRA [Concomitant]
     Active Substance: LEVETIRACETAM
  4. BENADRYL [Concomitant]
     Active Substance: DIPHENHYDRAMINE HYDROCHLORIDE
  5. CHLORTHALIDONE. [Concomitant]
     Active Substance: CHLORTHALIDONE
  6. LAMICTAL [Concomitant]
     Active Substance: LAMOTRIGINE
  7. TYLENOL [Concomitant]
     Active Substance: ACETAMINOPHEN
  8. STEROID KNEE INJECTIONS [Concomitant]
  9. MAGNESIUM [Concomitant]
     Active Substance: MAGNESIUM
  10. PEPCID [Concomitant]
     Active Substance: FAMOTIDINE

REACTIONS (24)
  - Somnolence [None]
  - Anxiety [None]
  - Insomnia [None]
  - Impaired driving ability [None]
  - Economic problem [None]
  - Hypokalaemia [None]
  - Panic attack [None]
  - Osteoporosis [None]
  - Impaired work ability [None]
  - Visual impairment [None]
  - Quality of life decreased [None]
  - Seizure [None]
  - Migraine [None]
  - Palpitations [None]
  - Alopecia [None]
  - Bradyphrenia [None]
  - Magnesium deficiency [None]
  - Road traffic accident [None]
  - Amnesia [None]
  - Headache [None]
  - Uterine leiomyoma [None]
  - Mood swings [None]
  - Renal disorder [None]
  - Fatigue [None]

NARRATIVE: CASE EVENT DATE: 20090609
